FAERS Safety Report 10592346 (Version 2)
Quarter: 2014Q4

REPORT INFORMATION
  Report Type: Spontaneous
  Country: US (occurrence: None)
  Receive Date: 20141117
  Receipt Date: 20141222
  Transmission Date: 20150529
  Serious: Yes (Life-Threatening, Other)
  Sender: FDA-Public Use
  Company Number: 2014US0482

PATIENT
  Age: 61 Year

DRUGS (1)
  1. KINERET [Suspect]
     Active Substance: ANAKINRA
     Indication: ACUTE FEBRILE NEUTROPHILIC DERMATOSIS
     Route: 058

REACTIONS (2)
  - Chronic myeloid leukaemia [None]
  - Splenomegaly [None]

NARRATIVE: CASE EVENT DATE: 201208
